FAERS Safety Report 12085517 (Version 1)
Quarter: 2016Q1

REPORT INFORMATION
  Report Type: Spontaneous
  Country: FR (occurrence: FR)
  Receive Date: 20160217
  Receipt Date: 20160217
  Transmission Date: 20160526
  Serious: Yes (Disabling, Other)
  Sender: FDA-Public Use
  Company Number: FR-PFIZER INC-2016083318

PATIENT
  Age: 85 Year
  Sex: Male

DRUGS (7)
  1. MEDIATOR [Suspect]
     Active Substance: BENFLUOREX
     Dosage: 150 MG COATED TABLET, UNK
     Route: 048
     Dates: start: 200306, end: 200710
  2. LASILIX /00032601/ [Concomitant]
     Active Substance: FUROSEMIDE
     Dosage: UNK
  3. MODOPAR [Concomitant]
     Active Substance: BENSERAZIDE HYDROCHLORIDE\LEVODOPA
  4. COUMADINE [Concomitant]
     Active Substance: WARFARIN SODIUM
  5. LEVOTHYROX [Concomitant]
     Active Substance: LEVOTHYROXINE
  6. DOSTINEX [Suspect]
     Active Substance: CABERGOLINE
     Indication: PITUITARY TUMOUR BENIGN
     Dosage: 0.5 MG TABLET, UNK
     Route: 048
     Dates: start: 201312, end: 201509
  7. LASILIX /00032601/ [Concomitant]
     Active Substance: FUROSEMIDE
     Dosage: 125 MG, UNK

REACTIONS (6)
  - Dilatation ventricular [Not Recovered/Not Resolved]
  - Dyspnoea exertional [Unknown]
  - Tricuspid valve incompetence [Not Recovered/Not Resolved]
  - Weight increased [Recovered/Resolved]
  - Oedema peripheral [Recovered/Resolved]
  - Right ventricular failure [Not Recovered/Not Resolved]

NARRATIVE: CASE EVENT DATE: 2015
